FAERS Safety Report 16628144 (Version 1)
Quarter: 2019Q3

REPORT INFORMATION
  Report Type: Spontaneous
  Country: ES (occurrence: ES)
  Receive Date: 20190724
  Receipt Date: 20190724
  Transmission Date: 20191004
  Serious: Yes (Other)
  Sender: FDA-Public Use
  Company Number: ES-009507513-1907ESP009647

PATIENT
  Age: 65 Year
  Sex: Male

DRUGS (1)
  1. SITAGLIPTIN PHOSPHATE (+) METFORMIN HYDROCHLORIDE [Suspect]
     Active Substance: METFORMIN HYDROCHLORIDE\SITAGLIPTIN PHOSPHATE
     Dosage: 2 DOSAGE FORM, QD (STRENGTH: 1G/50MG)
     Route: 048
     Dates: start: 20190319

REACTIONS (2)
  - Oedema [Unknown]
  - Dyspnoea [Unknown]

NARRATIVE: CASE EVENT DATE: 20190319
